FAERS Safety Report 5114661-5 (Version None)
Quarter: 2006Q3

REPORT INFORMATION
  Report Type: 
  Country: None (occurrence: None)
  Receive Date: 20060926
  Receipt Date: 20060914
  Transmission Date: 20061208
  Serious: Yes (Death, Other)
  Sender: FDA-Public Use
  Company Number: US-JNJFOC-20050507326

PATIENT
  Sex: Female

DRUGS (10)
  1. REMICADE [Suspect]
     Indication: RHEUMATOID ARTHRITIS
     Route: 042
  2. PLAQUENIL [Concomitant]
  3. PREDNISONE TAB [Concomitant]
  4. FOLIC ACID [Concomitant]
  5. MICRONASE [Concomitant]
  6. METHOTREXATE [Concomitant]
  7. FOSAMAX [Concomitant]
  8. MULTI-VITAMIN [Concomitant]
  9. PREDNISONE TAB [Concomitant]
     Route: 047
  10. TYLENOL [Concomitant]

REACTIONS (11)
  - AORTIC VALVE DISEASE [None]
  - AORTIC VALVE STENOSIS [None]
  - CARDIAC FAILURE CONGESTIVE [None]
  - CHRONIC OBSTRUCTIVE PULMONARY DISEASE [None]
  - DEATH [None]
  - DIABETES MELLITUS [None]
  - HYPERVENTILATION [None]
  - MITRAL VALVE DISEASE [None]
  - MITRAL VALVE INCOMPETENCE [None]
  - MYELODYSPLASTIC SYNDROME [None]
  - RESPIRATORY FAILURE [None]
